FAERS Safety Report 12836527 (Version 2)
Quarter: 2016Q4

REPORT INFORMATION
  Report Type: Spontaneous
  Country: US (occurrence: US)
  Receive Date: 20161011
  Receipt Date: 20161027
  Transmission Date: 20170207
  Serious: No
  Sender: FDA-Public Use
  Company Number: US-GILEAD-2016-0236496

PATIENT
  Age: 17 Year
  Sex: Male

DRUGS (1)
  1. TRUVADA [Suspect]
     Active Substance: EMTRICITABINE\TENOFOVIR DISOPROXIL FUMARATE
     Indication: OFF LABEL USE
     Route: 065

REACTIONS (3)
  - Off label use [Unknown]
  - Haematuria [Unknown]
  - Haematochezia [Unknown]
